FAERS Safety Report 9891800 (Version 1)
Quarter: 2014Q1

REPORT INFORMATION
  Report Type: Spontaneous
  Country: IT (occurrence: IT)
  Receive Date: 20140212
  Receipt Date: 20140212
  Transmission Date: 20141002
  Serious: Yes (Hospitalization)
  Sender: FDA-Public Use
  Company Number: IT-PFIZER INC-2014038124

PATIENT
  Age: 87 Year
  Sex: Female

DRUGS (3)
  1. TRIATEC [Suspect]
     Dosage: 60 MG, SINGLE
     Route: 048
     Dates: start: 20140127, end: 20140127
  2. ESOPRAL [Suspect]
     Dosage: 280 MG, SINGLE
     Route: 048
     Dates: start: 20140127, end: 20140127
  3. NORMIX [Suspect]
     Dosage: 2400 MG, SINGLE
     Route: 048
     Dates: start: 20140127, end: 20140127

REACTIONS (3)
  - Drug abuse [Unknown]
  - Suicide attempt [Recovering/Resolving]
  - Hypertension [Unknown]
